FAERS Safety Report 20423157 (Version 2)
Quarter: 2022Q1

REPORT INFORMATION
  Report Type: Spontaneous
  Country: BG (occurrence: BG)
  Receive Date: 20220203
  Receipt Date: 20220224
  Transmission Date: 20220424
  Serious: Yes (Death, Hospitalization)
  Sender: FDA-Public Use
  Company Number: BG-002147023-NVSC2022BG022054

PATIENT

DRUGS (5)
  1. RUXOLITINIB [Suspect]
     Active Substance: RUXOLITINIB
     Indication: Myelofibrosis
     Dosage: 15 MG, BID
     Route: 065
     Dates: start: 20190417
  2. CANDESARTAN [Concomitant]
     Active Substance: CANDESARTAN
     Indication: Product used for unknown indication
     Dosage: ? TABLET OF 16 MG (BID)
     Route: 048
  3. ATORVIN [Concomitant]
     Indication: Product used for unknown indication
     Dosage: 1 TABLET OF 20 MG QD
     Route: 048
  4. ELIQUIS [Concomitant]
     Active Substance: APIXABAN
     Indication: Product used for unknown indication
     Dosage: 1 TABLET OF 5 MG BID
     Route: 048
  5. BISOPROLOL FUMARATE\HYDROCHLOROTHIAZIDE [Concomitant]
     Active Substance: BISOPROLOL FUMARATE\HYDROCHLOROTHIAZIDE
     Indication: Product used for unknown indication
     Dosage: 1 TABLET OF 5/12.5 MG QD
     Route: 065

REACTIONS (7)
  - Cardiovascular disorder [Fatal]
  - Respiratory failure [Fatal]
  - Haemodynamic instability [Fatal]
  - Pneumothorax [Not Recovered/Not Resolved]
  - COVID-19 pneumonia [Fatal]
  - Pseudomonas infection [Unknown]
  - Aspergillus infection [Unknown]

NARRATIVE: CASE EVENT DATE: 20211119
